FAERS Safety Report 7687876-X (Version None)
Quarter: 2011Q3

REPORT INFORMATION
  Report Type: 
  Country: None (occurrence: None)
  Receive Date: 20110817
  Receipt Date: 20110810
  Transmission Date: 20111222
  Serious: Yes (Death, Hospitalization)
  Sender: FDA-Public Use
  Company Number: US-CELGENEUS-163-21880-11041826

PATIENT
  Sex: Male
  Weight: 106.24 kg

DRUGS (12)
  1. ALKERAN [Concomitant]
     Route: 065
  2. PREDNISONE [Concomitant]
     Route: 065
  3. REVLIMID [Suspect]
     Indication: MULTIPLE MYELOMA
     Dosage: 10 MILLIGRAM
     Route: 048
     Dates: start: 20100110, end: 20110101
  4. LASIX [Concomitant]
     Route: 065
  5. SOMA [Concomitant]
     Route: 065
  6. LEVOTHYROXINE SODIUM [Concomitant]
     Route: 065
  7. ASPIRIN [Concomitant]
     Route: 065
  8. VICODIN [Concomitant]
     Route: 065
  9. COMBIVENT [Concomitant]
     Route: 065
  10. LISINOPRIL [Concomitant]
     Route: 065
  11. COMPAZINE [Concomitant]
     Route: 065
  12. VALTREX [Concomitant]
     Route: 065

REACTIONS (1)
  - MULTIPLE MYELOMA [None]
